FAERS Safety Report 8609215-X (Version None)
Quarter: 2012Q3

REPORT INFORMATION
  Report Type: 
  Country: None (occurrence: None)
  Receive Date: 20120821
  Receipt Date: 20120716
  Transmission Date: 20120928
  Serious: Yes (Hospitalization, Disabling, Other)
  Sender: FDA-Public Use
  Company Number: US-009507513-1010USA03220

PATIENT

DRUGS (1)
  1. FOSAMAX [Suspect]
     Indication: OSTEOPENIA
     Dosage: 10 MG, UNK
     Route: 048
     Dates: start: 20020825, end: 20091213

REACTIONS (31)
  - RENAL FAILURE [None]
  - HYPERLIPIDAEMIA [None]
  - IDIOPATHIC URTICARIA [None]
  - HYPERTENSION [None]
  - SPINAL COLUMN STENOSIS [None]
  - BACTERIAL DISEASE CARRIER [None]
  - FEMUR FRACTURE [None]
  - ROSACEA [None]
  - ARTHROPATHY [None]
  - MUSCULOSKELETAL PAIN [None]
  - FALL [None]
  - HYPOACUSIS [None]
  - PAIN [None]
  - DEPRESSION [None]
  - MUSCLE SPASMS [None]
  - SCOLIOSIS [None]
  - HAEMARTHROSIS [None]
  - HERPES ZOSTER [None]
  - BACK PAIN [None]
  - MYOCARDIAL INFARCTION [None]
  - BACK INJURY [None]
  - ASTHENIA [None]
  - WRIST FRACTURE [None]
  - MUSCULOSKELETAL DISORDER [None]
  - ROAD TRAFFIC ACCIDENT [None]
  - CONTUSION [None]
  - VITAMIN B12 DEFICIENCY [None]
  - DIZZINESS [None]
  - TONSILLECTOMY [None]
  - FRACTURE [None]
  - NAUSEA [None]
